FAERS Safety Report 11070145 (Version 5)
Quarter: 2016Q2

REPORT INFORMATION
  Report Type: Spontaneous
  Country: US (occurrence: US)
  Receive Date: 20150427
  Receipt Date: 20160603
  Transmission Date: 20160815
  Serious: Yes (Death, Hospitalization, Other)
  Sender: FDA-Public Use
  Company Number: US-CELGENEUS-USA-2015044901

PATIENT
  Age: 59 Year
  Sex: Male
  Weight: 86.81 kg

DRUGS (16)
  1. MEROPENEM. [Concomitant]
     Active Substance: MEROPENEM
     Indication: FEBRILE NEUTROPENIA
     Route: 041
     Dates: start: 20150506, end: 20150605
  2. POMALYST [Suspect]
     Active Substance: POMALIDOMIDE
     Indication: KAPOSI^S SARCOMA
     Route: 048
     Dates: start: 20130621, end: 201312
  3. POMALYST [Suspect]
     Active Substance: POMALIDOMIDE
     Dosage: 600 MILLIGRAM
     Route: 048
     Dates: start: 201505, end: 20150609
  4. REVLIMID [Suspect]
     Active Substance: LENALIDOMIDE
     Indication: PRIMARY EFFUSION LYMPHOMA
     Dosage: 25-10 MG
     Route: 048
     Dates: start: 201504, end: 201505
  5. LAMIVUDINE. [Concomitant]
     Active Substance: LAMIVUDINE
     Indication: HIV INFECTION
     Dosage: 200 MILLIGRAM
     Route: 048
     Dates: start: 200905
  6. DAPTOMYCIN. [Concomitant]
     Active Substance: DAPTOMYCIN
     Indication: CELLULITIS
     Dosage: 150 MILLIGRAM
     Route: 041
     Dates: start: 20150524, end: 20150524
  7. ABACAVIR. [Concomitant]
     Active Substance: ABACAVIR
     Indication: HIV INFECTION
     Route: 048
     Dates: start: 200905
  8. ASA [Concomitant]
     Active Substance: ASPIRIN
     Indication: THROMBOSIS PROPHYLAXIS
     Dosage: 20 MILLIGRAM/SQ. METER
     Route: 048
     Dates: start: 20130621, end: 201506
  9. DARUNAVIR [Concomitant]
     Active Substance: DARUNAVIR
     Indication: HIV INFECTION
     Route: 048
     Dates: start: 200905
  10. TRIUMEQ [Concomitant]
     Active Substance: ABACAVIR SULFATE\DOLUTEGRAVIR SODIUM\LAMIVUDINE
     Indication: HIV INFECTION
     Dosage: 600 MILLIGRAM
     Route: 048
     Dates: start: 20150410, end: 20150609
  11. MICAFUNGIN [Concomitant]
     Active Substance: MICAFUNGIN
     Indication: PROPHYLAXIS
     Dosage: 81 MILLIGRAM
     Route: 041
     Dates: start: 20150524, end: 20150603
  12. RITONAVIR. [Concomitant]
     Active Substance: RITONAVIR
     Indication: HIV INFECTION
     Route: 048
     Dates: start: 200905
  13. VANCOMYCIN [Concomitant]
     Active Substance: VANCOMYCIN
     Indication: DRUG LEVEL
     Route: 041
     Dates: start: 20150425, end: 20150524
  14. LEVOFLOXACIN. [Concomitant]
     Active Substance: LEVOFLOXACIN
     Indication: INFECTION
     Route: 048
     Dates: start: 20150604, end: 20150611
  15. POMALYST [Suspect]
     Active Substance: POMALIDOMIDE
     Dosage: 200 MILLIGRAM
     Route: 048
     Dates: start: 20140206, end: 20150409
  16. DEXAMETHASONE. [Concomitant]
     Active Substance: DEXAMETHASONE
     Indication: LYMPHOMA
     Route: 048
     Dates: start: 20150430, end: 20150604

REACTIONS (3)
  - Febrile neutropenia [Recovered/Resolved]
  - Primary effusion lymphoma [Fatal]
  - Cellulitis [Recovered/Resolved]

NARRATIVE: CASE EVENT DATE: 20150410
